FAERS Safety Report 7609648-4 (Version None)
Quarter: 2011Q3

REPORT INFORMATION
  Report Type: 
  Country: None (occurrence: None)
  Receive Date: 20110714
  Receipt Date: 20110706
  Transmission Date: 20111222
  Serious: Yes (Other)
  Sender: FDA-Public Use
  Company Number: US-BRISTOL-MYERS SQUIBB COMPANY-15880420

PATIENT
  Sex: Male

DRUGS (1)
  1. HYDREA [Suspect]
     Indication: SICKLE CELL ANAEMIA

REACTIONS (1)
  - BONE PAIN [None]
